FAERS Safety Report 19158710 (Version 1)
Quarter: 2021Q2

REPORT INFORMATION
  Report Type: Spontaneous
  Country: US (occurrence: US)
  Receive Date: 20210420
  Receipt Date: 20210420
  Transmission Date: 20210717
  Serious: Yes (Other)
  Sender: FDA-Public Use
  Company Number: US-MACLEODS PHARMACEUTICALS US LTD-MAC2021030860

PATIENT

DRUGS (2)
  1. PREDNISOLONE ACETATE. [Concomitant]
     Active Substance: PREDNISOLONE ACETATE
     Indication: IRITIS
     Dosage: UNK
     Route: 061
  2. TRIAMCINOLONE ACETONIDE. [Suspect]
     Active Substance: TRIAMCINOLONE ACETONIDE
     Indication: IRITIS
     Dosage: 40 MILLIGRAM, SINGLE SUB?TENON INJECTION
     Route: 031

REACTIONS (2)
  - Necrotising retinitis [Recovered/Resolved]
  - Cytomegalovirus infection [Recovered/Resolved]
